FAERS Safety Report 12651472 (Version 1)
Quarter: 2016Q3

REPORT INFORMATION
  Report Type: Spontaneous
  Country: US (occurrence: None)
  Receive Date: 20160815
  Receipt Date: 20160815
  Transmission Date: 20161109
  Serious: Yes (Other)
  Sender: FDA-Public Use
  Company Number: None

PATIENT
  Age: 58 Year
  Sex: Male
  Weight: 102.51 kg

DRUGS (1)
  1. HELIXATE [Suspect]
     Active Substance: ANTIHEMOPHILIC FACTOR, HUMAN RECOMBINANT
     Indication: FACTOR VIII DEFICIENCY
     Route: 040
     Dates: start: 20160722, end: 20160801

REACTIONS (8)
  - Cold sweat [None]
  - Abdominal discomfort [None]
  - Fatigue [None]
  - Haemarthrosis [None]
  - Condition aggravated [None]
  - Product use issue [None]
  - Hot flush [None]
  - Drug dispensing error [None]

NARRATIVE: CASE EVENT DATE: 20160809
